FAERS Safety Report 13038576 (Version 2)
Quarter: 2017Q1

REPORT INFORMATION
  Report Type: Spontaneous
  Country: US (occurrence: US)
  Receive Date: 20161219
  Receipt Date: 20170201
  Transmission Date: 20170428
  Serious: Yes (Hospitalization, Other)
  Sender: FDA-Public Use
  Company Number: US-009507513-1612USA004710

PATIENT
  Age: 58 Year
  Sex: Male
  Weight: 111.11 kg

DRUGS (1)
  1. SYLATRON [Suspect]
     Active Substance: PEGINTERFERON ALFA-2B
     Dosage: 3 MICROGRAM PER KILOGRAM, ONCE A WEEK
     Route: 058
     Dates: start: 20140917, end: 20141201

REACTIONS (1)
  - Cellulitis [Unknown]

NARRATIVE: CASE EVENT DATE: 20141008
